FAERS Safety Report 22340616 (Version 3)
Quarter: 2023Q2

REPORT INFORMATION
  Report Type: Spontaneous
  Country: US (occurrence: US)
  Receive Date: 20230518
  Receipt Date: 20230524
  Transmission Date: 20230722
  Serious: Yes (Other)
  Sender: FDA-Public Use
  Company Number: US-PFIZER INC-202300190331

PATIENT
  Age: 59 Year
  Sex: Female
  Weight: 58.06 kg

DRUGS (4)
  1. CHANTIX [Suspect]
     Active Substance: VARENICLINE TARTRATE
     Indication: Smoking cessation therapy
     Dosage: UNK
     Dates: start: 202304, end: 202304
  2. CLONAZEPAM [Concomitant]
     Active Substance: CLONAZEPAM
     Indication: Post-traumatic stress disorder
     Dosage: UNK
  3. CLONAZEPAM [Concomitant]
     Active Substance: CLONAZEPAM
     Indication: Anxiety
  4. CLONAZEPAM [Concomitant]
     Active Substance: CLONAZEPAM
     Indication: Panic attack

REACTIONS (13)
  - Drug dependence [Not Recovered/Not Resolved]
  - Therapeutic response unexpected [Unknown]
  - Paranoia [Not Recovered/Not Resolved]
  - Stress [Unknown]
  - Lethargy [Not Recovered/Not Resolved]
  - Depression [Not Recovered/Not Resolved]
  - Anger [Not Recovered/Not Resolved]
  - Personal relationship issue [Unknown]
  - Crying [Unknown]
  - Tremor [Unknown]
  - Amnesia [Unknown]
  - Abnormal dreams [Unknown]
  - Intentional product misuse [Unknown]

NARRATIVE: CASE EVENT DATE: 20230501
